FAERS Safety Report 17263156 (Version 1)
Quarter: 2020Q1

REPORT INFORMATION
  Report Type: Report from Study
  Country: NL (occurrence: NL)
  Receive Date: 20200113
  Receipt Date: 20200113
  Transmission Date: 20200409
  Serious: Yes (Hospitalization)
  Sender: FDA-Public Use
  Company Number: NVSC2020NL004869

PATIENT
  Age: 4 Year
  Sex: Male

DRUGS (3)
  1. ILARIS [Suspect]
     Active Substance: CANAKINUMAB
     Indication: PRODUCT USED FOR UNKNOWN INDICATION
     Dosage: UNK, Q4W
     Route: 058
     Dates: start: 20180725
  2. ILARIS [Suspect]
     Active Substance: CANAKINUMAB
     Dosage: UNK, Q4W
     Route: 058
     Dates: start: 20200108
  3. ILARIS [Suspect]
     Active Substance: CANAKINUMAB
     Dosage: UNK, Q4W
     Route: 058
     Dates: start: 20191213

REACTIONS (1)
  - Pneumonia [Recovered/Resolved]

NARRATIVE: CASE EVENT DATE: 20191213
